FAERS Safety Report 23595049 (Version 2)
Quarter: 2024Q3

REPORT INFORMATION
  Report Type: Spontaneous
  Country: US (occurrence: US)
  Receive Date: 20240305
  Receipt Date: 20240926
  Transmission Date: 20241016
  Serious: Yes (Other)
  Sender: RANBAXY
  Company Number: US-SUN PHARMACEUTICAL INDUSTRIES LTD-2024R1-434262

PATIENT
  Age: 64 Year
  Sex: Male
  Weight: 104.31 kg

DRUGS (9)
  1. METOPROLOL [Interacting]
     Active Substance: METOPROLOL
     Indication: Cardiac failure
     Dosage: 12.5 MILLIGRAM, DAILY
     Route: 065
  2. SPIRONOLACTONE [Interacting]
     Active Substance: SPIRONOLACTONE
     Indication: Cardiac failure
     Dosage: UNK
     Route: 065
  3. VALSARTAN [Interacting]
     Active Substance: VALSARTAN
     Indication: Cardiac failure
     Dosage: 51 MILLIGRAM, BID
     Route: 065
  4. EMPAGLIFLOZIN [Interacting]
     Active Substance: EMPAGLIFLOZIN
     Indication: Product used for unknown indication
     Dosage: UNK
     Route: 065
  5. SACUBITRIL [Interacting]
     Active Substance: SACUBITRIL
     Indication: Cardiac failure
     Dosage: 49 MILLIGRAM, BID
     Route: 065
  6. TIRZEPATIDE [Interacting]
     Active Substance: TIRZEPATIDE
     Indication: Product used for unknown indication
     Dosage: 10 MILLIGRAM, WEEKLY
     Route: 065
  7. TIRZEPATIDE [Interacting]
     Active Substance: TIRZEPATIDE
     Dosage: 12.5 MILLIGRAM, WEEKLY
     Route: 065
  8. TORSEMIDE [Interacting]
     Active Substance: TORSEMIDE
     Indication: Cardiac failure
     Dosage: 50 MILLIGRAM, BID
     Route: 065
  9. SEMAGLUTIDE [Concomitant]
     Active Substance: SEMAGLUTIDE
     Indication: Product used for unknown indication
     Dosage: 2 MILLIGRAM, WEEKLY
     Route: 065

REACTIONS (4)
  - Drug interaction [Unknown]
  - Dizziness [Recovering/Resolving]
  - Sinus tachycardia [Recovering/Resolving]
  - Blood creatinine increased [Recovering/Resolving]
